FAERS Safety Report 9207787 (Version 2)
Quarter: 2013Q4

REPORT INFORMATION
  Report Type: Spontaneous
  Country: US (occurrence: US)
  Receive Date: 20130403
  Receipt Date: 20131108
  Transmission Date: 20140711
  Serious: Yes (Other)
  Sender: FDA-Public Use
  Company Number: US-BAYER-2013-040703

PATIENT
  Age: 23 Year
  Sex: Female
  Weight: 143.76 kg

DRUGS (14)
  1. YAZ [Suspect]
  2. YASMIN [Suspect]
  3. XOPENEX [Concomitant]
     Dosage: UNK UNK, PRN
     Dates: start: 20080101
  4. CYMBALTA [Concomitant]
     Dosage: 90 MG, UNK
     Dates: start: 20080101
  5. COREG [Concomitant]
     Dosage: 40 MG, UNK
     Dates: start: 20080101
  6. BUSPIRONE [Concomitant]
     Dosage: 10 MG, BID
     Dates: start: 20080101
  7. TRAZODONE [Concomitant]
     Dosage: 100 MG, UNK
     Dates: start: 20080101
  8. PROTONIX [Concomitant]
     Dosage: 40 MG, UNK
  9. ASMANEX [Concomitant]
     Dosage: 220 UNK, UNK
     Dates: start: 20080101
  10. NASOCORT [Concomitant]
     Dosage: UNK
     Dates: start: 20080101
  11. ULTRAM [Concomitant]
     Dosage: UNK
     Dates: start: 20080101
  12. PREDNISONE [Concomitant]
     Dosage: 60 MG, UNK
     Route: 048
     Dates: start: 20080101
  13. TORADOL [Concomitant]
     Dosage: 60 MG, UNK
     Route: 030
     Dates: start: 20080101
  14. EXCEDRIN [ACETYLSALICYLIC ACID,CAFFEINE,PARACETAMOL,SALICYLAMIDE] [Concomitant]
     Dosage: UNK
     Dates: start: 20080101

REACTIONS (3)
  - Gallbladder disorder [None]
  - Injury [None]
  - Biliary dyskinesia [None]
